FAERS Safety Report 13280367 (Version 1)
Quarter: 2017Q1

REPORT INFORMATION
  Report Type: Spontaneous
  Country: US (occurrence: US)
  Receive Date: 20170228
  Receipt Date: 20170228
  Transmission Date: 20170428
  Serious: Yes (Other)
  Sender: FDA-Public Use
  Company Number: None

PATIENT
  Age: 49 Year
  Sex: Female
  Weight: 110.2 kg

DRUGS (8)
  1. MULTIVITAMIN [Concomitant]
     Active Substance: VITAMINS
  2. GABAPENTIN. [Concomitant]
     Active Substance: GABAPENTIN
  3. TRAMADOL. [Concomitant]
     Active Substance: TRAMADOL
  4. REMICADE [Suspect]
     Active Substance: INFLIXIMAB
     Indication: COLITIS
     Route: 042
     Dates: start: 20161006, end: 20170126
  5. LIALDA [Concomitant]
     Active Substance: MESALAMINE
  6. PROBIOTIC [Concomitant]
     Active Substance: PROBIOTICS NOS
  7. LOMOTIL [Concomitant]
     Active Substance: ATROPINE SULFATE\DIPHENOXYLATE HYDROCHLORIDE
  8. TYLENOL [Concomitant]
     Active Substance: ACETAMINOPHEN

REACTIONS (3)
  - Burning sensation [None]
  - Scar [None]
  - Rash generalised [None]

NARRATIVE: CASE EVENT DATE: 20170126
